FAERS Safety Report 13516192 (Version 2)
Quarter: 2017Q2

REPORT INFORMATION
  Report Type: Spontaneous
  Country: FR (occurrence: FR)
  Receive Date: 20170505
  Receipt Date: 20170608
  Transmission Date: 20170830
  Serious: Yes (Hospitalization, Other)
  Sender: FDA-Public Use
  Company Number: FR-BRISTOL-MYERS SQUIBB COMPANY-BMS-2017-036454

PATIENT
  Age: 40 Year
  Sex: Female

DRUGS (6)
  1. ORENCIA [Suspect]
     Active Substance: ABATACEPT
     Indication: CUTANEOUS LUPUS ERYTHEMATOSUS
     Dosage: UNK, QMO
     Route: 065
     Dates: end: 20161117
  2. DUROGESIC [Suspect]
     Active Substance: FENTANYL
     Indication: ANALGESIC INTERVENTION SUPPORTIVE THERAPY
     Dosage: 50 ?G, QH; EVERY 3 DAYS
     Route: 062
  3. APROVEL [Concomitant]
     Active Substance: IRBESARTAN
     Indication: HYPERTENSION
     Dosage: UNK
     Route: 048
     Dates: end: 201611
  4. CORTANCYL [Suspect]
     Active Substance: PREDNISONE
     Indication: CUTANEOUS LUPUS ERYTHEMATOSUS
     Dosage: 20 MG, QD
     Route: 048
  5. LOXEN L P [Suspect]
     Active Substance: NICARDIPINE HYDROCHLORIDE
     Indication: HYPERTENSION
     Dosage: 50 MG, UNK
     Route: 048
     Dates: start: 201611
  6. PLAQUENIL                          /00072602/ [Suspect]
     Active Substance: HYDROXYCHLOROQUINE DIPHOSPHATE
     Indication: CUTANEOUS LUPUS ERYTHEMATOSUS
     Dosage: 200 MG, BID
     Route: 048

REACTIONS (4)
  - Product use issue [Unknown]
  - Premature separation of placenta [Recovered/Resolved]
  - Maternal exposure during pregnancy [Recovered/Resolved]
  - Abortion spontaneous [Recovered/Resolved]

NARRATIVE: CASE EVENT DATE: 20170104
